FAERS Safety Report 7305283-6 (Version None)
Quarter: 2011Q1

REPORT INFORMATION
  Report Type: 
  Country: None (occurrence: None)
  Receive Date: 20110222
  Receipt Date: 20110215
  Transmission Date: 20110831
  Serious: Yes (Hospitalization)
  Sender: FDA-Public Use
  Company Number: FR-PFIZER INC-2011033332

PATIENT
  Age: 41 Year
  Sex: Male
  Weight: 113 kg

DRUGS (8)
  1. SOMATROPIN [Suspect]
     Indication: HYPOPITUITARISM
     Dosage: 0.3 MG, 1X/DAY
     Dates: start: 20080327
  2. HYDROCORTISONE [Concomitant]
     Indication: BLOOD CORTICOTROPHIN DECREASED
     Dosage: 20 MG, 1X/DAY
     Route: 048
     Dates: start: 20080327
  3. DESMOPRESSIN ACETATE [Concomitant]
     Indication: BLOOD ANTIDIURETIC HORMONE DECREASED
     Dosage: 0.4 MG, 1X/DAY
     Route: 048
     Dates: start: 20080327
  4. LEVOTHYROX [Concomitant]
     Indication: BLOOD THYROID STIMULATING HORMONE DECREASED
     Dosage: 175 UG, 1X/DAY
     Dates: start: 20080927
  5. ANDROTARDYL [Concomitant]
     Indication: BLOOD LUTEINISING HORMONE DECREASED
     Dosage: 1 UNK, EVERY 3 WEEKS
     Dates: start: 20080327
  6. GLUCOPHAGE [Concomitant]
     Indication: BLOOD ANTIDIURETIC HORMONE DECREASED
     Dosage: 2300 UNK, 1X/DAY
     Dates: start: 20090227
  7. LEVOTHYROX [Concomitant]
     Indication: PRIMARY HYPOTHYROIDISM
  8. ANDROTARDYL [Concomitant]
     Indication: BLOOD FOLLICLE STIMULATING HORMONE DECREASED

REACTIONS (1)
  - PERITONITIS [None]
